FAERS Safety Report 10067102 (Version 1)
Quarter: 2014Q2

REPORT INFORMATION
  Report Type: Spontaneous
  Country: US (occurrence: US)
  Receive Date: 20140409
  Receipt Date: 20140409
  Transmission Date: 20141212
  Serious: Yes (Hospitalization)
  Sender: FDA-Public Use
  Company Number: US-ASTRAZENECA-2014SE22641

PATIENT
  Age: 63 Year
  Sex: Male
  Weight: 77.2 kg

DRUGS (5)
  1. LISINOPRIL [Suspect]
     Indication: BLOOD PRESSURE ABNORMAL
     Route: 048
     Dates: start: 2008
  2. PRILOSEC [Suspect]
     Indication: DYSPEPSIA
     Route: 048
     Dates: start: 2008
  3. CEP-32496 [Suspect]
     Indication: LUNG CANCER METASTATIC
     Route: 065
     Dates: start: 20140116
  4. POTASSIUM CHLORIDE [Concomitant]
     Indication: HYPOKALAEMIA
     Dosage: 20 MILLIEQUIVELANTS DAILY
     Route: 048
     Dates: start: 20131216, end: 20140116
  5. ZYRTEC-D [Concomitant]
     Indication: HYPERSENSITIVITY
     Route: 048
     Dates: start: 20140116

REACTIONS (5)
  - Chills [Recovered/Resolved]
  - Pain [Recovered/Resolved]
  - Dehydration [Recovered/Resolved]
  - Diarrhoea [Recovered/Resolved]
  - Vomiting [Recovered/Resolved]
